FAERS Safety Report 8832160 (Version 2)
Quarter: 2014Q2

REPORT INFORMATION
  Report Type: Spontaneous
  Country: US (occurrence: US)
  Receive Date: 20121009
  Receipt Date: 20140509
  Transmission Date: 20141212
  Serious: Yes (Other)
  Sender: FDA-Public Use
  Company Number: US-ASTRAZENECA-2012SE74301

PATIENT
  Age: 57 Year
  Sex: Male
  Weight: 117.9 kg

DRUGS (13)
  1. CRESTOR [Suspect]
     Indication: BLOOD CHOLESTEROL INCREASED
     Route: 048
  2. TOPROL XL [Suspect]
     Indication: HYPERTENSION
     Route: 048
  3. TOPROL XL [Suspect]
     Indication: HYPERTENSION
     Route: 048
     Dates: start: 20140501
  4. LISINOPRIL [Suspect]
     Indication: HYPERTENSION
     Route: 048
  5. HYDROCHLOROTHIAZIDE [Concomitant]
     Indication: OLIGURIA
  6. LYRICA [Concomitant]
     Indication: PAIN IN EXTREMITY
     Dates: start: 2012
  7. PROCARDIA [Concomitant]
     Indication: MINERAL SUPPLEMENTATION
  8. ZANAFLEX [Concomitant]
     Indication: MYALGIA
     Dates: start: 2012
  9. CLONAZEPAM [Concomitant]
     Indication: INSOMNIA
  10. ASPIRIN [Concomitant]
     Indication: ISCHAEMIC HEART DISEASE PROPHYLAXIS
  11. RANITIDINE [Concomitant]
     Indication: ABDOMINAL DISCOMFORT
  12. RANITIDINE [Concomitant]
     Indication: GASTROOESOPHAGEAL REFLUX DISEASE
  13. RANITIDINE [Concomitant]
     Indication: DYSPEPSIA

REACTIONS (9)
  - Periarthritis [Not Recovered/Not Resolved]
  - Hypertension [Not Recovered/Not Resolved]
  - Blood cholesterol increased [Not Recovered/Not Resolved]
  - Sciatica [Not Recovered/Not Resolved]
  - Myalgia [Not Recovered/Not Resolved]
  - Activities of daily living impaired [Unknown]
  - Insomnia [Not Recovered/Not Resolved]
  - Pain [Not Recovered/Not Resolved]
  - Intentional product misuse [Not Recovered/Not Resolved]
